FAERS Safety Report 7561731-8 (Version None)
Quarter: 2011Q2

REPORT INFORMATION
  Report Type: 
  Country: None (occurrence: None)
  Receive Date: 20110621
  Receipt Date: 20100903
  Transmission Date: 20111010
  Serious: No
  Sender: FDA-Public Use
  Company Number: US-ASTRAZENECA-2010SE41651

PATIENT
  Age: 28 Year
  Sex: Male

DRUGS (2)
  1. RHINOCORT [Suspect]
     Indication: MULTIPLE ALLERGIES
     Dosage: 2 SPRAYS EACH NOSTRIL, DAILY
     Route: 045
  2. OTHER INHALERS [Concomitant]
     Indication: DYSPNOEA

REACTIONS (1)
  - FUNGAL INFECTION [None]
